FAERS Safety Report 8891645 (Version 1)
Quarter: 2012Q4

REPORT INFORMATION
  Report Type: 
  Country: US (occurrence: US)
  Receive Date: 20121107
  Receipt Date: 20121107
  Transmission Date: 20130627
  Serious: No
  Sender: FDA-Public Use
  Company Number: US-AMGEN-USASP2011048536

PATIENT
  Age: 53 Year
  Sex: Female

DRUGS (1)
  1. ENBREL [Suspect]
     Indication: ANKYLOSING SPONDYLITIS
     Dosage: 50 mg, qwk
     Dates: start: 20081003, end: 2009

REACTIONS (6)
  - Visual impairment [Unknown]
  - Feeling abnormal [Unknown]
  - Headache [Unknown]
  - Influenza like illness [Unknown]
  - Injection site warmth [Unknown]
  - Injection site erythema [Unknown]
